FAERS Safety Report 7212412-1 (Version None)
Quarter: 2011Q1

REPORT INFORMATION
  Report Type: 
  Country: None (occurrence: None)
  Receive Date: 20110106
  Receipt Date: 20101223
  Transmission Date: 20110831
  Serious: Yes (Hospitalization, Other)
  Sender: FDA-Public Use
  Company Number: US-CELGENEUS-163-21880-10091375

PATIENT
  Sex: Female

DRUGS (18)
  1. ALLOPURINOL [Concomitant]
     Indication: GOUT
     Route: 048
  2. ACE INHIBITORS [Concomitant]
     Indication: CARDIAC FAILURE
     Route: 065
  3. CARVEDILOL [Concomitant]
     Indication: HYPERTENSION
     Route: 065
  4. CARVEDILOL [Concomitant]
     Indication: CORONARY ARTERY DISEASE
  5. ALDACTONE [Concomitant]
     Route: 048
  6. RED BLOOD CELLS [Concomitant]
     Dosage: 2 UNITS
     Route: 051
     Dates: start: 20100929, end: 20100929
  7. BETA BLOCKER [Concomitant]
     Indication: CARDIAC FAILURE
     Route: 065
  8. FUROSEMIDE [Concomitant]
     Route: 048
  9. ASPIRIN [Concomitant]
     Indication: CORONARY ARTERY DISEASE
     Route: 048
  10. REVLIMID [Suspect]
     Route: 048
     Dates: start: 20101111
  11. NEXIUM [Concomitant]
     Route: 048
  12. FUROSEMIDE [Concomitant]
     Indication: CORONARY ARTERY DISEASE
  13. ZETIA [Concomitant]
     Route: 048
  14. LEVOTHYROXINE [Concomitant]
     Indication: HYPOTHYROIDISM
     Route: 048
  15. POTASSIUM CHLORIDE [Concomitant]
     Route: 048
  16. DIGOXIN [Concomitant]
     Route: 048
  17. RED BLOOD CELLS [Concomitant]
     Indication: PANCYTOPENIA
     Dosage: 2 UNITS
     Route: 051
     Dates: start: 20100928, end: 20100928
  18. REVLIMID [Suspect]
     Route: 048
     Dates: start: 20090206, end: 20100929

REACTIONS (4)
  - FLUID OVERLOAD [None]
  - CARDIAC FAILURE [None]
  - DRUG INEFFECTIVE [None]
  - PANCYTOPENIA [None]
